FAERS Safety Report 9003098 (Version 1)
Quarter: 2013Q1

REPORT INFORMATION
  Report Type: Spontaneous
  Country: US (occurrence: US)
  Receive Date: 20130108
  Receipt Date: 20130108
  Transmission Date: 20140127
  Serious: Yes (Other)
  Sender: FDA-Public Use
  Company Number: US-009507513-1301USA002528

PATIENT
  Age: 6 Year
  Sex: Female

DRUGS (2)
  1. SINGULAIR [Suspect]
     Indication: COUGH
     Dosage: 5 MG, QD
  2. SINGULAIR [Suspect]
     Indication: SEASONAL ALLERGY

REACTIONS (2)
  - Agitation [Unknown]
  - Abnormal behaviour [Unknown]
